FAERS Safety Report 17927607 (Version 1)
Quarter: 2020Q2

REPORT INFORMATION
  Report Type: Report from Study
  Country: KW (occurrence: KW)
  Receive Date: 20200622
  Receipt Date: 20200622
  Transmission Date: 20200714
  Serious: Yes (Other)
  Sender: FDA-Public Use
  Company Number: KW-TAKEDA-2020TUS027218

PATIENT
  Age: 49 Year
  Sex: Male

DRUGS (1)
  1. PONATINIB [Suspect]
     Active Substance: PONATINIB
     Indication: ACUTE LYMPHOCYTIC LEUKAEMIA
     Dosage: 15 MILLIGRAM
     Route: 048

REACTIONS (1)
  - Acute lymphocytic leukaemia [Unknown]

NARRATIVE: CASE EVENT DATE: 202001
